FAERS Safety Report 10505051 (Version 1)
Quarter: 2014Q3

REPORT INFORMATION
  Report Type: Spontaneous
  Country: US (occurrence: None)
  Receive Date: 20140926
  Receipt Date: 20140926
  Transmission Date: 20150326
  Serious: No
  Sender: FDA-Public Use
  Company Number: 1000069145

PATIENT
  Age: 59 Year
  Sex: Male

DRUGS (2)
  1. MIRALAX (POLYETHYLENE GLYCOL 3350) (POLYETHYLENE GLYCOL 3350) [Concomitant]
  2. LINZESS [Suspect]
     Active Substance: LINACLOTIDE
     Indication: IRRITABLE BOWEL SYNDROME
     Dosage: 290 MCG (290 MCG, 1 IN 1 D), ORAL
     Route: 048
     Dates: start: 201406, end: 201406

REACTIONS (2)
  - Diarrhoea [None]
  - Folliculitis [None]

NARRATIVE: CASE EVENT DATE: 201406
